FAERS Safety Report 6981673-6 (Version None)
Quarter: 2010Q3

REPORT INFORMATION
  Report Type: 
  Country: None (occurrence: None)
  Receive Date: 20100914
  Receipt Date: 20090921
  Transmission Date: 20110219
  Serious: No
  Sender: FDA-Public Use
  Company Number: US-PFIZER INC-2009263039

PATIENT
  Sex: Female
  Weight: 63.5 kg

DRUGS (8)
  1. LYRICA [Suspect]
     Indication: ANGIOPATHY
     Dosage: 50 MG, 1X/DAY
     Dates: start: 20090826
  2. LYRICA [Suspect]
     Indication: PAIN IN EXTREMITY
  3. LYRICA [Suspect]
     Indication: NERVOUS SYSTEM DISORDER
  4. LYRICA [Suspect]
     Indication: MUSCLE DISORDER
  5. LYRICA [Suspect]
     Indication: ARTHRALGIA
  6. IBUPROFEN [Concomitant]
     Indication: PAIN
     Dosage: UNK
  7. FLECAINIDE ACETATE [Concomitant]
     Dosage: UNK
  8. LOVASTATIN [Concomitant]

REACTIONS (6)
  - FATIGUE [None]
  - FEELING ABNORMAL [None]
  - FEELING DRUNK [None]
  - RESTLESSNESS [None]
  - SEDATION [None]
  - SOMNOLENCE [None]
